FAERS Safety Report 5451474-9 (Version None)
Quarter: 2007Q3

REPORT INFORMATION
  Report Type: 
  Country: None (occurrence: None)
  Receive Date: 20070813
  Receipt Date: 20070403
  Transmission Date: 20080115
  Serious: Yes (Hospitalization)
  Sender: FDA-Public Use
  Company Number: 20073562

PATIENT
  Age: 9 Year
  Sex: Male

DRUGS (10)
  1. LIORESAL [Suspect]
     Indication: MUSCLE SPASTICITY
     Dosage: 439 MCG, DAILY, INTRATHECAL
     Route: 037
  2. CALCIUM CARBONATE [Concomitant]
  3. ZYRTEC [Concomitant]
  4. DIAZEPAM [Concomitant]
  5. CHLORAL HYDRATE [Concomitant]
  6. LAMICTAL [Concomitant]
  7. DEPAKENE [Concomitant]
  8. CENTRUM [Concomitant]
  9. PREVACID [Concomitant]
  10. KLONOPIN [Concomitant]

REACTIONS (4)
  - DRUG INEFFECTIVE [None]
  - HYPERTONIA [None]
  - INSOMNIA [None]
  - TREMOR [None]
